FAERS Safety Report 10045035 (Version 2)
Quarter: 2014Q1

REPORT INFORMATION
  Report Type: Spontaneous
  Country: IT (occurrence: IT)
  Receive Date: 20140328
  Receipt Date: 20140328
  Transmission Date: 20141002
  Serious: Yes (Other)
  Sender: FDA-Public Use
  Company Number: PHHY2014IT021019

PATIENT
  Age: 29 Year
  Sex: 0

DRUGS (1)
  1. CLOZAPIN HEXAL [Suspect]
     Indication: SCHIZOAFFECTIVE DISORDER
     Dosage: 250 MG, QD
     Route: 048
     Dates: start: 20121028, end: 20121104

REACTIONS (2)
  - Psychotic disorder [Recovered/Resolved]
  - Hyperpyrexia [Recovered/Resolved]
